FAERS Safety Report 5127020-6 (Version None)
Quarter: 2006Q4

REPORT INFORMATION
  Report Type: 
  Country: None (occurrence: None)
  Receive Date: 20061013
  Receipt Date: 20061005
  Transmission Date: 20070319
  Serious: Yes (Hospitalization, Other)
  Sender: FDA-Public Use
  Company Number: FR-GLAXOSMITHKLINE-B0441297A

PATIENT
  Sex: Female
  Weight: 75 kg

DRUGS (3)
  1. ARIXTRA [Suspect]
     Indication: DEEP VEIN THROMBOSIS
     Dosage: 7.5MG PER DAY
     Route: 058
     Dates: start: 20060101, end: 20060101
  2. ALDACTAZINE [Concomitant]
  3. DOGMATIL [Concomitant]

REACTIONS (4)
  - ANAEMIA [None]
  - MUSCLE HAEMORRHAGE [None]
  - PAIN IN EXTREMITY [None]
  - SPONTANEOUS HAEMATOMA [None]
